FAERS Safety Report 11111919 (Version 1)
Quarter: 2015Q2

REPORT INFORMATION
  Report Type: Spontaneous
  Country: US (occurrence: None)
  Receive Date: 20150513
  Receipt Date: 20150513
  Transmission Date: 20150821
  Serious: Yes (Hospitalization, Other)
  Sender: FDA-Public Use
  Company Number: None

PATIENT
  Age: 29 Year
  Sex: Female
  Weight: 65.77 kg

DRUGS (3)
  1. GABAPENTIN 300MG [Suspect]
     Active Substance: GABAPENTIN
     Indication: NEURALGIA
     Dosage: 1, THREE TIMES DAILY, TAKEN BY MOUTH
     Route: 048
  2. XANAX [Concomitant]
     Active Substance: ALPRAZOLAM
  3. AMBIEN [Concomitant]
     Active Substance: ZOLPIDEM TARTRATE

REACTIONS (7)
  - Muscle disorder [None]
  - Dystonia [None]
  - Respiratory disorder [None]
  - Vertigo [None]
  - Tremor [None]
  - Dyskinesia [None]
  - Seizure [None]

NARRATIVE: CASE EVENT DATE: 20150502
